FAERS Safety Report 5399268-7 (Version None)
Quarter: 2007Q3

REPORT INFORMATION
  Report Type: 
  Country: None (occurrence: None)
  Receive Date: 20070727
  Receipt Date: 20070724
  Transmission Date: 20080115
  Serious: Yes (Death)
  Sender: FDA-Public Use
  Company Number: B0478091A

PATIENT
  Age: 84 Year
  Sex: Female
  Weight: 43 kg

DRUGS (10)
  1. PAXIL [Suspect]
     Indication: NEUROSIS
     Route: 048
     Dates: start: 20070408
  2. DOGMATYL [Suspect]
     Indication: NEUROSIS
     Route: 048
     Dates: start: 20070408
  3. HALCION [Concomitant]
     Indication: INSOMNIA
     Dosage: .5MG PER DAY
     Route: 048
  4. MAGNESIUM OXIDE [Concomitant]
     Indication: CONSTIPATION
     Dosage: 1.5G PER DAY
     Route: 048
  5. CONIEL [Concomitant]
     Indication: HYPERTENSION
     Dosage: 4MG PER DAY
     Route: 048
  6. BASEN [Concomitant]
     Indication: DIABETES MELLITUS
     Dosage: .2MG PER DAY
     Route: 048
  7. LANSOPRAZOLE [Concomitant]
     Indication: GASTRIC ULCER
     Dosage: 30MG PER DAY
     Route: 065
  8. LAC B [Concomitant]
     Indication: CONSTIPATION
     Dosage: 1.5G PER DAY
     Route: 048
  9. ENSURE [Concomitant]
     Indication: MALNUTRITION
     Dosage: 250ML PER DAY
     Route: 048
     Dates: start: 20070305
  10. SENNOSIDE [Concomitant]
     Indication: CONSTIPATION
     Route: 048

REACTIONS (1)
  - COMPLETED SUICIDE [None]
